FAERS Safety Report 5187048-7 (Version None)
Quarter: 2006Q4

REPORT INFORMATION
  Report Type: 
  Country: None (occurrence: None)
  Receive Date: 20061220
  Receipt Date: 20060927
  Transmission Date: 20070319
  Serious: No
  Sender: FDA-Public Use
  Company Number: US-AMGEN-US194972

PATIENT
  Sex: Female

DRUGS (2)
  1. ENBREL [Suspect]
     Indication: PSORIATIC ARTHROPATHY
     Route: 058
     Dates: start: 20060727, end: 20060908
  2. ENBREL [Suspect]
     Indication: PSORIASIS

REACTIONS (3)
  - DYSPNOEA [None]
  - INJECTION SITE ERYTHEMA [None]
  - PALPITATIONS [None]
